FAERS Safety Report 5988360-1 (Version None)
Quarter: 2008Q4

REPORT INFORMATION
  Report Type: 
  Country: None (occurrence: None)
  Receive Date: 20081210
  Receipt Date: 20081202
  Transmission Date: 20090506
  Serious: Yes (Other)
  Sender: FDA-Public Use
  Company Number: FR-AVENTIS-200814259FR

PATIENT
  Age: 25 Year
  Sex: Female

DRUGS (7)
  1. LOVENOX [Suspect]
     Indication: DRUG USE FOR UNKNOWN INDICATION
     Route: 058
     Dates: start: 20080916, end: 20080920
  2. KIOVIG (IMMUNOGLOBULIN HUMAN NORMAL) [Suspect]
     Indication: DRUG USE FOR UNKNOWN INDICATION
     Route: 042
     Dates: start: 20080916, end: 20080920
  3. LYRICA [Concomitant]
     Route: 048
     Dates: start: 20080201
  4. AMITRIPTYLINE HCL [Concomitant]
     Route: 048
     Dates: start: 20080201
  5. NOVORAPID [Concomitant]
     Indication: DIABETES MELLITUS
     Route: 058
     Dates: start: 20071201
  6. LANTUS [Concomitant]
     Indication: DIABETES MELLITUS
     Route: 058
  7. CERAZETTE                          /00754001/ [Concomitant]
     Indication: ORAL CONTRACEPTION
     Route: 048

REACTIONS (1)
  - NEUTROPENIA [None]
